FAERS Safety Report 9860980 (Version 1)
Quarter: 2014Q1

REPORT INFORMATION
  Report Type: Spontaneous
  Country: MD (occurrence: None)
  Receive Date: 20140130
  Receipt Date: 20140130
  Transmission Date: 20141002
  Serious: Yes (Other)
  Sender: FDA-Public Use
  Company Number: LEVE20140002

PATIENT
  Age: 91 Year
  Sex: Female

DRUGS (6)
  1. LEVETIRACETAM (LEVETIRACETAM) [Suspect]
     Indication: CONVULSION
     Route: 048
  2. BENZYL HYDROCHLOROTHIAZIDE (BENZYLHYDROCHLOROTHIAZIDE) (BENZYLHYDOCHLOROTHIAZIDE) [Concomitant]
  3. AMLODIPINE (AMLODIPINE) (AMLODIPINE) [Concomitant]
  4. METOCLOPRAMIDE (METICLOPRAMIDE) [Concomitant]
  5. ESOMEPRAZOLE (ESOMEPRAZOLE) (ESOMEPRAZOLE) [Concomitant]
  6. SENNOSIDE (SENNOSIDE A+B) (SENNOSIDE A+B) [Concomitant]

REACTIONS (1)
  - Acute generalised exanthematous pustulosis [None]
